FAERS Safety Report 8921878 (Version 1)
Quarter: 2012Q4

REPORT INFORMATION
  Report Type: 
  Country: FR (occurrence: FR)
  Receive Date: 20121121
  Receipt Date: 20121121
  Transmission Date: 20130627
  Serious: Yes (Hospitalization)
  Sender: FDA-Public Use
  Company Number: FR-ROCHE-1155089

PATIENT
  Age: 81 Year
  Sex: Female

DRUGS (4)
  1. ROCEPHINE [Suspect]
     Indication: BRONCHITIS
     Route: 042
     Dates: start: 20120101, end: 20121010
  2. FLAGYL [Suspect]
     Indication: BRONCHITIS
     Route: 042
     Dates: start: 20121001, end: 20121010
  3. DOLIPRANE [Concomitant]
     Route: 065
  4. XANAX [Concomitant]
     Route: 065

REACTIONS (2)
  - Erythema [Recovered/Resolved]
  - Pruritus [Recovered/Resolved]
